FAERS Safety Report 22167472 (Version 1)
Quarter: 2023Q2

REPORT INFORMATION
  Report Type: Spontaneous
  Country: US (occurrence: US)
  Receive Date: 20230403
  Receipt Date: 20230403
  Transmission Date: 20230721
  Serious: No
  Sender: FDA-Public Use
  Company Number: US-SANOFI-01554044

PATIENT
  Age: 90 Year
  Sex: Male

DRUGS (4)
  1. ALLEGRA ALLERGY [Suspect]
     Active Substance: FEXOFENADINE HYDROCHLORIDE
     Indication: Pulmonary congestion
     Dosage: 180 MG, QD
     Route: 048
  2. ALLEGRA ALLERGY [Suspect]
     Active Substance: FEXOFENADINE HYDROCHLORIDE
     Indication: Dyspnoea
  3. AFRIN NASAL DECONGESTANT [Concomitant]
     Dosage: UNK
     Route: 045
  4. XLEAR NASAL SPRAY [Concomitant]
     Dosage: UNK
     Route: 045

REACTIONS (3)
  - Malaise [Unknown]
  - Abdominal discomfort [Unknown]
  - Product use in unapproved indication [Unknown]
